FAERS Safety Report 14163066 (Version 1)
Quarter: 2017Q4

REPORT INFORMATION
  Report Type: Spontaneous
  Country: VN (occurrence: VN)
  Receive Date: 20171107
  Receipt Date: 20171107
  Transmission Date: 20180321
  Serious: Yes (Other)
  Sender: FDA-Public Use
  Company Number: VN-ROCHE-2020159

PATIENT
  Age: 32 Year
  Sex: Female

DRUGS (1)
  1. HERCEPTIN [Suspect]
     Active Substance: TRASTUZUMAB
     Indication: BREAST CANCER STAGE II
     Route: 065

REACTIONS (2)
  - Myocardial ischaemia [Not Recovered/Not Resolved]
  - Menorrhagia [Not Recovered/Not Resolved]
